FAERS Safety Report 10213630 (Version 1)
Quarter: 2014Q2

REPORT INFORMATION
  Report Type: Spontaneous
  Country: US (occurrence: None)
  Receive Date: 20140602
  Receipt Date: 20140602
  Transmission Date: 20141212
  Serious: No
  Sender: FDA-Public Use
  Company Number: None

PATIENT
  Age: 45 Year
  Sex: Female
  Weight: 103.42 kg

DRUGS (1)
  1. ACYCLOVIR [Suspect]
     Indication: HERPES VIRUS INFECTION
     Dosage: 200 MG 1 PILL?5 TIMES A DAY?TAKEN BY MOUTH
     Route: 048

REACTIONS (7)
  - Abdominal pain upper [None]
  - Feeling hot [None]
  - Hyperhidrosis [None]
  - Diarrhoea [None]
  - Salivary hypersecretion [None]
  - Vomiting [None]
  - Unevaluable event [None]
